FAERS Safety Report 5312523-1 (Version None)
Quarter: 2007Q2

REPORT INFORMATION
  Report Type: 
  Country: None (occurrence: None)
  Receive Date: 20070430
  Receipt Date: 20070416
  Transmission Date: 20071010
  Serious: Yes (Hospitalization)
  Sender: FDA-Public Use
  Company Number: DE-BRISTOL-MYERS SQUIBB COMPANY-13754882

PATIENT
  Age: 70 Year
  Sex: Male

DRUGS (3)
  1. CETUXIMAB [Suspect]
     Indication: METASTATIC GASTRIC CANCER
     Route: 042
     Dates: start: 20070405, end: 20070405
  2. CISPLATIN [Suspect]
     Indication: METASTATIC GASTRIC CANCER
     Route: 042
     Dates: start: 20070405, end: 20070405
  3. DOCETAXEL [Suspect]
     Indication: METASTATIC GASTRIC CANCER
     Route: 042
     Dates: start: 20070405, end: 20070405

REACTIONS (6)
  - CARDIOVASCULAR DISORDER [None]
  - COUGH [None]
  - DEHYDRATION [None]
  - DIARRHOEA [None]
  - FATIGUE [None]
  - NAUSEA [None]
